FAERS Safety Report 23284861 (Version 1)
Quarter: 2023Q4

REPORT INFORMATION
  Report Type: Spontaneous
  Country: CH (occurrence: CH)
  Receive Date: 20231211
  Receipt Date: 20231211
  Transmission Date: 20240110
  Serious: Yes (Other)
  Sender: FDA-Public Use
  Company Number: CH-GILEAD-2023-0653981

PATIENT
  Age: 38 Year
  Sex: Female

DRUGS (1)
  1. YESCARTA [Suspect]
     Active Substance: AXICABTAGENE CILOLEUCEL
     Indication: Diffuse large B-cell lymphoma
     Dosage: UNK
     Route: 065

REACTIONS (9)
  - Bronchopulmonary aspergillosis [Not Recovered/Not Resolved]
  - Malignant pleural effusion [Unknown]
  - Hypogammaglobulinaemia [Not Recovered/Not Resolved]
  - Thrombosis [Unknown]
  - Immune effector cell-associated neurotoxicity syndrome [Unknown]
  - Cytokine release syndrome [Unknown]
  - Pyrexia [Unknown]
  - Haematotoxicity [Unknown]
  - Blood lactate dehydrogenase increased [Unknown]

NARRATIVE: CASE EVENT DATE: 20230901
